FAERS Safety Report 7832770-4 (Version None)
Quarter: 2011Q4

REPORT INFORMATION
  Report Type: 
  Country: None (occurrence: None)
  Receive Date: 20111024
  Receipt Date: 20111014
  Transmission Date: 20120403
  Serious: No
  Sender: FDA-Public Use
  Company Number: US-BIOGENIDEC-2011BI039720

PATIENT
  Age: 56 Year
  Sex: Female

DRUGS (4)
  1. 4-AP COMPOUNDED VERSION OF AMPYRA [Concomitant]
     Indication: MULTIPLE SCLEROSIS
     Dates: start: 20110701
  2. TYSABRI [Suspect]
     Indication: MULTIPLE SCLEROSIS
     Route: 042
     Dates: start: 20100623
  3. BENADRYL [Concomitant]
     Indication: PREMEDICATION
  4. TYLENOL-500 [Concomitant]
     Indication: PREMEDICATION

REACTIONS (5)
  - ASTHENIA [None]
  - HAEMATOCHEZIA [None]
  - FOOT FRACTURE [None]
  - HEADACHE [None]
  - HAEMORRHOIDS [None]
